FAERS Safety Report 5753552-3 (Version None)
Quarter: 2008Q2

REPORT INFORMATION
  Report Type: 
  Country: None (occurrence: None)
  Receive Date: 20080530
  Receipt Date: 20080522
  Transmission Date: 20081010
  Serious: Yes (Hospitalization)
  Sender: FDA-Public Use
  Company Number: FR-AVENTIS-200811873FR

PATIENT
  Age: 84 Year
  Sex: Male

DRUGS (4)
  1. LASILIX                            /00032601/ [Suspect]
     Indication: CARDIAC FAILURE
     Route: 048
  2. COVERSYL                           /00790701/ [Suspect]
     Indication: CARDIAC FAILURE
     Route: 048
     Dates: end: 20080509
  3. XATRAL                             /00975301/ [Suspect]
     Indication: DRUG USE FOR UNKNOWN INDICATION
     Route: 048
     Dates: end: 20080509
  4. ALDACTONE [Suspect]
     Indication: DRUG USE FOR UNKNOWN INDICATION
     Route: 048
     Dates: end: 20080510

REACTIONS (2)
  - HEPATITIS [None]
  - MIXED LIVER INJURY [None]
